FAERS Safety Report 4740552-5 (Version None)
Quarter: 2005Q3

REPORT INFORMATION
  Report Type: 
  Country: None (occurrence: None)
  Receive Date: 20050729
  Receipt Date: 20041012
  Transmission Date: 20060218
  Serious: Yes (Other)
  Sender: FDA-Public Use
  Company Number: US-2004-033466

PATIENT
  Age: 45 Year
  Sex: Female
  Weight: 83.9 kg

DRUGS (1)
  1. MAGNEVIST [Suspect]
     Indication: ANGIOGRAM PERIPHERAL
     Dosage: 40 ML, 1 DOSE, INTRAVENOUS
     Route: 042
     Dates: start: 20041008, end: 20041008

REACTIONS (6)
  - DYSPNOEA [None]
  - EYE SWELLING [None]
  - FLUSHING [None]
  - GENERALISED ERYTHEMA [None]
  - PRURITUS [None]
  - SWELLING FACE [None]
